FAERS Safety Report 15850928 (Version 2)
Quarter: 2019Q1

REPORT INFORMATION
  Report Type: Spontaneous
  Country: US (occurrence: US)
  Receive Date: 20190121
  Receipt Date: 20190215
  Transmission Date: 20190417
  Serious: Yes (Hospitalization)
  Sender: FDA-Public Use
  Company Number: US-BIOGEN-2019BI00686750

PATIENT
  Age: 6 Month
  Sex: Female

DRUGS (1)
  1. SPINRAZA [Suspect]
     Active Substance: NUSINERSEN
     Indication: SPINAL MUSCULAR ATROPHY
     Dosage: 3 LOADING DOSES PER 14 DAYS 4TH DOSE ONCE AFTER 30 DAYS. MAINTENANCE DOSE 1 EVERY 4 MONTHS
     Route: 037
     Dates: start: 20180822

REACTIONS (1)
  - Influenza [Unknown]

NARRATIVE: CASE EVENT DATE: 20181218
